FAERS Safety Report 9875895 (Version 1)
Quarter: 2014Q1

REPORT INFORMATION
  Report Type: Spontaneous
  Country: US (occurrence: None)
  Receive Date: 20140205
  Receipt Date: 20140205
  Transmission Date: 20141002
  Serious: Yes (Life-Threatening, Hospitalization, Disabling)
  Sender: FDA-Public Use
  Company Number: None

PATIENT
  Age: 63 Year
  Sex: Male
  Weight: 53.52 kg

DRUGS (1)
  1. VISIPAQUE [Suspect]
     Indication: ANGIOPLASTY
     Route: 042
     Dates: start: 20140128, end: 20140128

REACTIONS (6)
  - Contrast media allergy [None]
  - Convulsion [None]
  - Tachycardia [None]
  - Hypoxia [None]
  - Angioedema [None]
  - Urinary incontinence [None]
